FAERS Safety Report 5379415-3 (Version None)
Quarter: 2007Q3

REPORT INFORMATION
  Report Type: 
  Country: None (occurrence: None)
  Receive Date: 20070705
  Receipt Date: 20070622
  Transmission Date: 20080115
  Serious: Yes (Death, Life-Threatening, Hospitalization, Disabling)
  Sender: FDA-Public Use
  Company Number: PH-MERCK-0705PHL00009

PATIENT
  Age: 58 Year
  Sex: Female
  Weight: 70 kg

DRUGS (3)
  1. SITAGLIPTIN PHOSPHATE [Suspect]
     Indication: TYPE 2 DIABETES MELLITUS
     Route: 048
     Dates: start: 20070326, end: 20070504
  2. METFORMIN [Concomitant]
     Indication: TYPE 2 DIABETES MELLITUS
     Route: 065
     Dates: start: 20030610, end: 20070504
  3. SIMVASTATIN [Concomitant]
     Indication: DYSLIPIDAEMIA
     Route: 065
     Dates: start: 20030909, end: 20070504

REACTIONS (2)
  - ACUTE MYELOID LEUKAEMIA [None]
  - CEREBRAL HAEMORRHAGE [None]
